FAERS Safety Report 13372181 (Version 1)
Quarter: 2017Q1

REPORT INFORMATION
  Report Type: Spontaneous
  Country: US (occurrence: US)
  Receive Date: 20170324
  Receipt Date: 20170324
  Transmission Date: 20170429
  Serious: Yes (Other)
  Sender: FDA-Public Use
  Company Number: None

PATIENT
  Age: 48 Year
  Sex: Female
  Weight: 63 kg

DRUGS (10)
  1. BABY ASPIRIN [Concomitant]
     Active Substance: ASPIRIN
  2. BUTRANS [Suspect]
     Active Substance: BUPRENORPHINE
     Indication: PAIN
     Dosage: OTHER STRENGTH:MCG/HOUR;QUANTITY:1 PATCH(ES);OTHER FREQUENCY:PER WEEK;?
     Route: 062
  3. FLONASE [Concomitant]
     Active Substance: FLUTICASONE PROPIONATE
  4. SPIROLACTONE [Concomitant]
     Active Substance: SPIRONOLACTONE
  5. LOSARTAN. [Concomitant]
     Active Substance: LOSARTAN
  6. BACLOFIN [Concomitant]
  7. AMLODAPINE [Concomitant]
  8. CYMBALTA [Concomitant]
     Active Substance: DULOXETINE HYDROCHLORIDE
  9. MULTIVITAMIN [Concomitant]
     Active Substance: VITAMINS
  10. GABAPENTEN [Concomitant]
     Active Substance: GABAPENTIN

REACTIONS (1)
  - Application site irritation [None]

NARRATIVE: CASE EVENT DATE: 20170201
